FAERS Safety Report 20674327 (Version 1)
Quarter: 2022Q2

REPORT INFORMATION
  Report Type: Spontaneous
  Country: US (occurrence: None)
  Receive Date: 20220404
  Receipt Date: 20220404
  Transmission Date: 20220721
  Serious: Yes (Other)
  Sender: FDA-Public Use
  Company Number: None

PATIENT
  Age: 50 Year
  Sex: Female

DRUGS (1)
  1. ARMOUR THYROID [Suspect]
     Active Substance: THYROID, PORCINE
     Indication: Hypothyroidism
     Dosage: FREQUENCY : DAILY;?
     Route: 048
     Dates: start: 20200803, end: 20220404

REACTIONS (2)
  - Chest pain [None]
  - Headache [None]

NARRATIVE: CASE EVENT DATE: 20220404
